FAERS Safety Report 5311383-2 (Version None)
Quarter: 2007Q2

REPORT INFORMATION
  Report Type: 
  Country: None (occurrence: None)
  Receive Date: 20070430
  Receipt Date: 20070418
  Transmission Date: 20071010
  Serious: Yes (Other)
  Sender: FDA-Public Use
  Company Number: PHBS2007JP06948

PATIENT

DRUGS (3)
  1. DIOVAN [Suspect]
     Indication: HYPERTENSION
     Route: 048
  2. VANCOMYCIN [Suspect]
  3. LASIX [Concomitant]

REACTIONS (1)
  - AGRANULOCYTOSIS [None]
